FAERS Safety Report 16570360 (Version 1)
Quarter: 2019Q3

REPORT INFORMATION
  Report Type: Spontaneous
  Country: US (occurrence: US)
  Receive Date: 20190715
  Receipt Date: 20190715
  Transmission Date: 20191004
  Serious: No
  Sender: FDA-Public Use
  Company Number: US-BAYER-2019-132088

PATIENT
  Age: 43 Year
  Sex: Female

DRUGS (3)
  1. MIRENA [Suspect]
     Active Substance: LEVONORGESTREL
     Indication: HORMONE LEVEL ABNORMAL
  2. MIRENA [Suspect]
     Active Substance: LEVONORGESTREL
     Indication: UTERINE ENLARGEMENT
     Dosage: 20 MCG/24HR, CONT
     Route: 015
     Dates: start: 201904, end: 20190710
  3. MIRENA [Suspect]
     Active Substance: LEVONORGESTREL
     Indication: FERTILITY INCREASED

REACTIONS (5)
  - Product use in unapproved indication [Recovered/Resolved]
  - Throat tightness [Not Recovered/Not Resolved]
  - Drug ineffective for unapproved indication [None]
  - Off label use [Recovered/Resolved]
  - Oxygen saturation decreased [Not Recovered/Not Resolved]

NARRATIVE: CASE EVENT DATE: 2019
